FAERS Safety Report 19588855 (Version 1)
Quarter: 2021Q3

REPORT INFORMATION
  Report Type: Spontaneous
  Country: SE (occurrence: SE)
  Receive Date: 20210721
  Receipt Date: 20210721
  Transmission Date: 20211014
  Serious: Yes (Other)
  Sender: FDA-Public Use
  Company Number: SE-TEVA-2021-SE-1933316

PATIENT
  Sex: Female

DRUGS (14)
  1. AIROMIR [Concomitant]
     Active Substance: ALBUTEROL SULFATE
  2. FURIX 40 MG TABLETT [Concomitant]
     Dates: start: 20180604
  3. TROMBYL [Concomitant]
     Active Substance: ASPIRIN
  4. SIFROL [Concomitant]
     Active Substance: PRAMIPEXOLE
  5. ALVEDON [Concomitant]
     Active Substance: ACETAMINOPHEN
  6. TOLTERODIN [Concomitant]
     Active Substance: TOLTERODINE TARTRATE
  7. ACETYLCYSTEIN [Concomitant]
     Active Substance: ACETYLCYSTEINE
  8. INOLAXOL [Concomitant]
     Active Substance: HERBALS\KARAYA GUM
  9. GABAPENTIN 1A FARMA [Concomitant]
     Active Substance: GABAPENTIN
     Dates: start: 20200414
  10. PREDNISOLONE. [Suspect]
     Active Substance: PREDNISOLONE
     Indication: GIANT CELL ARTERITIS
     Route: 065
  11. ERGENYL RETARD [Concomitant]
     Active Substance: VALPROIC ACID
  12. CETIRIZIN [Concomitant]
     Active Substance: CETIRIZINE HYDROCHLORIDE
  13. LEVAXIN [Concomitant]
     Active Substance: LEVOTHYROXINE SODIUM
  14. MOMETASON [Concomitant]
     Active Substance: MOMETASONE FUROATE

REACTIONS (1)
  - Skin ulcer [Unknown]
